FAERS Safety Report 24124427 (Version 1)
Quarter: 2024Q3

REPORT INFORMATION
  Report Type: Report from Study
  Country: TH (occurrence: None)
  Receive Date: 20240723
  Receipt Date: 20240723
  Transmission Date: 20241017
  Serious: Yes (Other)
  Sender: ASTRAZENECA
  Company Number: 2022A347817

PATIENT
  Age: 3265 Week
  Sex: Female

DRUGS (1)
  1. FASENRA [Suspect]
     Active Substance: BENRALIZUMAB
     Indication: Asthma
     Dosage: 30 MG Q 2 MONTH
     Route: 058
     Dates: start: 20211005

REACTIONS (10)
  - Suicidal ideation [Unknown]
  - Fall [Unknown]
  - Ligament sprain [Unknown]
  - Pain in extremity [Unknown]
  - Back pain [Unknown]
  - Dyspnoea [Unknown]
  - Palpitations [Unknown]
  - Tremor [Unknown]
  - Suffocation feeling [Unknown]
  - Asthma [Unknown]

NARRATIVE: CASE EVENT DATE: 20221011
